FAERS Safety Report 7305421-5 (Version None)
Quarter: 2011Q1

REPORT INFORMATION
  Report Type: 
  Country: None (occurrence: None)
  Receive Date: 20110222
  Receipt Date: 20110217
  Transmission Date: 20110831
  Serious: Yes (Other)
  Sender: FDA-Public Use
  Company Number: US-PFIZER INC-2011035990

PATIENT
  Sex: Female

DRUGS (9)
  1. HYDROMORPHONE [Concomitant]
     Dosage: UNK
  2. DIAZEPAM [Concomitant]
     Dosage: UNK
  3. BACLOFEN [Concomitant]
     Dosage: UNK
  4. TIZANIDINE [Concomitant]
     Dosage: UNK
  5. PROMETHAZINE [Concomitant]
     Dosage: 25 MG, UNK
  6. LORAZEPAM [Concomitant]
     Dosage: UNK
  7. ZOLPIDEM [Concomitant]
     Dosage: UNK
  8. MORPHINE [Concomitant]
     Dosage: UNK
  9. ANTIVERT [Suspect]
     Dosage: 25 MG, 4X/DAY

REACTIONS (2)
  - DIABETES MELLITUS [None]
  - TINNITUS [None]
